FAERS Safety Report 8740176 (Version 4)
Quarter: 2013Q1

REPORT INFORMATION
  Report Type: Spontaneous
  Country: PT (occurrence: PT)
  Receive Date: 20120823
  Receipt Date: 20130214
  Transmission Date: 20140127
  Serious: Yes (Other)
  Sender: FDA-Public Use
  Company Number: PT-MERCK-1208PRT008194

PATIENT
  Age: 40 Year
  Sex: Male
  Weight: 108 kg

DRUGS (2)
  1. EFFICIB [Suspect]
     Indication: TYPE 2 DIABETES MELLITUS
     Dosage: 50/1000 MG, QD
     Route: 048
     Dates: start: 20120723, end: 20120727
  2. ENALAPRIL\LERCANIDIPINE [Suspect]
     Indication: HYPERTENSION
     Dosage: 20/10MG, QD
     Route: 048
     Dates: start: 20120723, end: 20120727

REACTIONS (4)
  - Local swelling [Unknown]
  - Lip swelling [Unknown]
  - Myalgia [Unknown]
  - Drug interaction [None]
